FAERS Safety Report 7717764-1 (Version None)
Quarter: 2011Q3

REPORT INFORMATION
  Report Type: 
  Country: None (occurrence: None)
  Receive Date: 20110830
  Receipt Date: 20110823
  Transmission Date: 20111222
  Serious: Yes (Other)
  Sender: FDA-Public Use
  Company Number: FR-SANOFI-AVENTIS-2011SA053754

PATIENT
  Age: 66 Year
  Sex: Female

DRUGS (8)
  1. ACETAMINOPHEN [Concomitant]
     Route: 065
  2. PREDNISONE [Concomitant]
     Indication: RHEUMATOID ARTHRITIS
     Route: 048
  3. ARAVA [Suspect]
     Indication: RHEUMATOID ARTHRITIS
     Route: 048
     Dates: start: 20090901, end: 20110401
  4. NAPROXEN [Concomitant]
     Route: 048
  5. ESOMEPRAZOLE SODIUM [Concomitant]
     Route: 048
  6. CALCIUM CARBONATE [Concomitant]
     Route: 048
  7. ETANERCEPT [Suspect]
     Indication: RHEUMATOID ARTHRITIS
     Route: 058
     Dates: start: 20090901, end: 20110401
  8. ACTONEL [Concomitant]
     Route: 048

REACTIONS (1)
  - GLIOBLASTOMA [None]
